FAERS Safety Report 5065788-8 (Version None)
Quarter: 2006Q3

REPORT INFORMATION
  Report Type: 
  Country: None (occurrence: None)
  Receive Date: 20060727
  Receipt Date: 20060704
  Transmission Date: 20061208
  Serious: Yes (Other)
  Sender: FDA-Public Use
  Company Number: 2006-DE-03379GD

PATIENT
  Age: 55 Year
  Sex: Male

DRUGS (2)
  1. PREDNISONE TAB [Suspect]
     Dosage: 10 MG
  2. TACROLIMUS (TACROLIMUS) [Suspect]
     Dosage: 10 MG (TWICE A DAY)

REACTIONS (14)
  - ACID FAST BACILLI INFECTION [None]
  - ASTHENIA [None]
  - CONFUSIONAL STATE [None]
  - CSF CELL COUNT INCREASED [None]
  - CSF GLUCOSE INCREASED [None]
  - CSF PROTEIN INCREASED [None]
  - ENDOPHTHALMITIS [None]
  - EYE ABSCESS [None]
  - HEADACHE [None]
  - HYPERREFLEXIA [None]
  - NOCARDIOSIS [None]
  - NUCLEAR MAGNETIC RESONANCE IMAGING BRAIN ABNORMAL [None]
  - PYREXIA [None]
  - RETINAL DISORDER [None]
